FAERS Safety Report 11020727 (Version 3)
Quarter: 2015Q2

REPORT INFORMATION
  Report Type: Spontaneous
  Country: JP (occurrence: JP)
  Receive Date: 20150413
  Receipt Date: 20150422
  Transmission Date: 20150821
  Serious: Yes (Hospitalization, Other)
  Sender: FDA-Public Use
  Company Number: JP-JNJFOC-20150403669

PATIENT
  Age: 76 Year
  Sex: Male
  Weight: 68 kg

DRUGS (7)
  1. LANSOPRAZOLE. [Suspect]
     Active Substance: LANSOPRAZOLE
     Indication: ABDOMINAL PAIN UPPER
     Route: 048
     Dates: start: 20150319, end: 20150323
  2. PREDNISOLONE. [Concomitant]
     Active Substance: PREDNISOLONE
     Route: 048
     Dates: start: 20130123
  3. PLAVIX [Concomitant]
     Active Substance: CLOPIDOGREL BISULFATE
     Route: 048
  4. NITOROL R [Concomitant]
     Route: 048
  5. FAMOTIDINE. [Concomitant]
     Active Substance: FAMOTIDINE
     Route: 048
  6. AMLODIPINE BESILATE [Concomitant]
     Active Substance: AMLODIPINE BESYLATE
     Route: 048
  7. ZYTIGA [Suspect]
     Active Substance: ABIRATERONE ACETATE
     Indication: PROSTATE CANCER
     Route: 048
     Dates: start: 20150205, end: 20150323

REACTIONS (13)
  - Erythema [Unknown]
  - Dyspnoea [Unknown]
  - Decreased appetite [Unknown]
  - Loss of consciousness [Not Recovered/Not Resolved]
  - Rash generalised [Not Recovered/Not Resolved]
  - Generalised oedema [Unknown]
  - Abdominal pain upper [Unknown]
  - Anaphylactic reaction [Unknown]
  - Liver disorder [Unknown]
  - Hypokinesia [Not Recovered/Not Resolved]
  - Skin exfoliation [Unknown]
  - Generalised erythema [Not Recovered/Not Resolved]
  - Face oedema [Unknown]

NARRATIVE: CASE EVENT DATE: 2015
